FAERS Safety Report 21336210 (Version 1)
Quarter: 2022Q3

REPORT INFORMATION
  Report Type: Spontaneous
  Country: UA (occurrence: UA)
  Receive Date: 20220915
  Receipt Date: 20220915
  Transmission Date: 20221027
  Serious: Yes (Other)
  Sender: FDA-Public Use
  Company Number: UA-TEVA-2022-UA-2073269

PATIENT
  Sex: Male

DRUGS (2)
  1. LOSARTAN [Suspect]
     Active Substance: LOSARTAN
     Indication: Product used for unknown indication
     Dosage: 90 TABLETS IN PACKAGE.
     Route: 065
  2. LOSARTAN [Suspect]
     Active Substance: LOSARTAN
     Dosage: 90 TABLETS IN PACKAGE
     Route: 065

REACTIONS (3)
  - Hypertensive crisis [Unknown]
  - Cerebrovascular accident [Unknown]
  - Drug ineffective [Unknown]
